FAERS Safety Report 13472533 (Version 1)
Quarter: 2017Q2

REPORT INFORMATION
  Report Type: Spontaneous
  Country: US (occurrence: US)
  Receive Date: 20170423
  Receipt Date: 20170423
  Transmission Date: 20170830
  Serious: Yes (Other)
  Sender: FDA-Public Use
  Company Number: None

PATIENT
  Age: 57 Year
  Sex: Female
  Weight: 82.8 kg

DRUGS (3)
  1. LEVOFOXIN [Suspect]
     Active Substance: LEVOFLOXACIN
     Indication: URINARY TRACT INFECTION
  2. CIPRO [Suspect]
     Active Substance: CIPROFLOXACIN HYDROCHLORIDE
  3. LEVOFOXIN [Suspect]
     Active Substance: LEVOFLOXACIN
     Indication: SURGERY

REACTIONS (5)
  - Crying [None]
  - Middle insomnia [None]
  - Arthralgia [None]
  - Nightmare [None]
  - Vision blurred [None]

NARRATIVE: CASE EVENT DATE: 20170101
